FAERS Safety Report 5518177-3 (Version None)
Quarter: 2007Q4

REPORT INFORMATION
  Report Type: 
  Country: None (occurrence: None)
  Receive Date: 20071113
  Receipt Date: 20071113
  Transmission Date: 20080405
  Serious: Yes (Life-Threatening, Hospitalization)
  Sender: FDA-Public Use
  Company Number: None

PATIENT
  Age: 45 Year
  Sex: Male
  Weight: 58.9676 kg

DRUGS (8)
  1. HEPARIN [Suspect]
     Dosage: FLUSHES,   IV BOLUS
     Route: 040
     Dates: start: 20070425, end: 20070427
  2. HEPARIN [Suspect]
  3. MEPERIDINE HCL [Concomitant]
  4. METHYLPREDNISOLONE [Concomitant]
  5. FLAGYL [Concomitant]
  6. ZOFRAN [Concomitant]
  7. PROTONIX [Concomitant]
  8. PROMETHAZINE [Concomitant]

REACTIONS (1)
  - HEPARIN-INDUCED THROMBOCYTOPENIA [None]
